FAERS Safety Report 5564263-1 (Version None)
Quarter: 2007Q4

REPORT INFORMATION
  Report Type: 
  Country: None (occurrence: None)
  Receive Date: 20071212
  Receipt Date: 20071126
  Transmission Date: 20080405
  Serious: Yes (Hospitalization)
  Sender: FDA-Public Use
  Company Number: DSA_30976_2007

PATIENT
  Age: 76 Year
  Sex: Female

DRUGS (5)
  1. DILTIAZEM HCL [Suspect]
     Indication: DRUG USE FOR UNKNOWN INDICATION
     Dosage: (DF)
  2. STRONTIUM RANELATE [Suspect]
     Indication: OSTEOPOROSIS
     Dosage: (2 G QD ORAL)
     Route: 048
     Dates: start: 20070205, end: 20070312
  3. CALCIUM CARBONATE W/COLECALCIFEROL [Concomitant]
  4. ACETAMINOPHEN [Concomitant]
  5. RISEDRONATE SODIUM [Concomitant]

REACTIONS (3)
  - RASH PRURITIC [None]
  - SKIN EXFOLIATION [None]
  - UNEVALUABLE EVENT [None]
